FAERS Safety Report 18772651 (Version 2)
Quarter: 2021Q1

REPORT INFORMATION
  Report Type: Spontaneous
  Country: NL (occurrence: NL)
  Receive Date: 20210122
  Receipt Date: 20210127
  Transmission Date: 20210419
  Serious: Yes (Other)
  Sender: FDA-Public Use
  Company Number: NL-TEVA-2021-NL-1870542

PATIENT
  Age: 16 Year
  Sex: Female

DRUGS (1)
  1. SPIRONOLACTON [Suspect]
     Active Substance: SPIRONOLACTONE
     Route: 065

REACTIONS (1)
  - Breast mass [Unknown]
